FAERS Safety Report 6036841-7 (Version None)
Quarter: 2009Q1

REPORT INFORMATION
  Report Type: 
  Country: None (occurrence: None)
  Receive Date: 20090114
  Receipt Date: 20090108
  Transmission Date: 20090719
  Serious: Yes (Hospitalization, Other)
  Sender: FDA-Public Use
  Company Number: PHHY2008AT24053

PATIENT
  Sex: Male
  Weight: 118 kg

DRUGS (5)
  1. GLEEVEC [Suspect]
     Indication: CHRONIC MYELOID LEUKAEMIA
     Dosage: 400 MG, UNK
     Route: 048
     Dates: start: 20021023
  2. GLEEVEC [Suspect]
     Dosage: 600 MG, UNK
     Dates: end: 20031103
  3. GLEEVEC [Suspect]
     Dosage: 300 MG, UNK
  4. GLEEVEC [Suspect]
     Dosage: 400 MG, UNK
     Dates: end: 20080101
  5. ASPIRIN [Concomitant]
     Indication: THROMBOCYTHAEMIA
     Dosage: 100 MG, UNK
     Route: 048
     Dates: start: 20020101, end: 20021120

REACTIONS (9)
  - ALANINE AMINOTRANSFERASE INCREASED [None]
  - ASPARTATE AMINOTRANSFERASE INCREASED [None]
  - BIOPSY BONE MARROW ABNORMAL [None]
  - CHRONIC MYELOID LEUKAEMIA [None]
  - DRUG RESISTANCE [None]
  - HAEMOGLOBIN DECREASED [None]
  - NEUTROPHIL COUNT DECREASED [None]
  - PANCYTOPENIA [None]
  - PLATELET DISORDER [None]
